FAERS Safety Report 10982554 (Version 1)
Quarter: 2015Q2

REPORT INFORMATION
  Report Type: Spontaneous
  Country: US (occurrence: US)
  Receive Date: 20150403
  Receipt Date: 20150403
  Transmission Date: 20150821
  Serious: No
  Sender: FDA-Public Use
  Company Number: US-BIOGENIDEC-2007BI027044

PATIENT
  Age: 45 Year
  Sex: Male

DRUGS (9)
  1. TYSABRI [Suspect]
     Active Substance: NATALIZUMAB
     Indication: MULTIPLE SCLEROSIS
     Route: 042
     Dates: start: 20070803, end: 20071207
  2. ZETIA [Concomitant]
     Active Substance: EZETIMIBE
  3. PROVIGIL [Concomitant]
     Active Substance: MODAFINIL
  4. BACLOFEN. [Concomitant]
     Active Substance: BACLOFEN
  5. ASA [Concomitant]
     Active Substance: ASPIRIN
  6. DETROL LA [Concomitant]
     Active Substance: TOLTERODINE TARTRATE
  7. ARICEPT [Concomitant]
     Active Substance: DONEPEZIL HYDROCHLORIDE
  8. RISPERDAL [Concomitant]
     Active Substance: RISPERIDONE
  9. WELLBUTRIN [Concomitant]
     Active Substance: BUPROPION HYDROCHLORIDE

REACTIONS (1)
  - Hypersensitivity [Recovered/Resolved]

NARRATIVE: CASE EVENT DATE: 20071213
